FAERS Safety Report 9301989 (Version 2)
Quarter: 2013Q2

REPORT INFORMATION
  Report Type: Spontaneous
  Country: NL (occurrence: NL)
  Receive Date: 20130521
  Receipt Date: 20130530
  Transmission Date: 20140414
  Serious: Yes (Hospitalization)
  Sender: FDA-Public Use
  Company Number: NL-B.I. PHARMACEUTICALS,INC./RIDGEFIELD-2013-NL-00377NL

PATIENT
  Age: 44 Year
  Sex: Male

DRUGS (2)
  1. VIRAMUNE [Suspect]
     Indication: HIV INFECTION
     Dosage: 400 MG
     Route: 048
     Dates: start: 20130311, end: 20130425
  2. TRUVADA [Concomitant]
     Indication: HIV INFECTION
     Dosage: 245/200 MG 1DD
     Route: 048
     Dates: start: 20090904

REACTIONS (5)
  - Rash [Not Recovered/Not Resolved]
  - Mouth ulceration [Not Recovered/Not Resolved]
  - Hepatic function abnormal [Not Recovered/Not Resolved]
  - Syphilis [Unknown]
  - Herpes virus infection [Unknown]
